FAERS Safety Report 11716066 (Version 2)
Quarter: 2015Q4

REPORT INFORMATION
  Report Type: Spontaneous
  Country: US (occurrence: US)
  Receive Date: 20151104
  Receipt Date: 20151110
  Transmission Date: 20160304
  Serious: No
  Sender: FDA-Public Use
  Company Number: US-ELI_LILLY_AND_COMPANY-US201012002619

PATIENT
  Sex: Female

DRUGS (4)
  1. FORTEO [Suspect]
     Active Substance: TERIPARATIDE
     Indication: OSTEOPOROSIS
     Dosage: 20 UG, QD
     Dates: start: 20100805
  2. FENTANYL. [Concomitant]
     Active Substance: FENTANYL
  3. FORTEO [Suspect]
     Active Substance: TERIPARATIDE
     Dosage: 20 UG, QD
  4. FORTEO [Suspect]
     Active Substance: TERIPARATIDE
     Dosage: 20 UG, QD

REACTIONS (17)
  - Nausea [Unknown]
  - Pruritus [Recovering/Resolving]
  - Malaise [Unknown]
  - Feeling abnormal [Recovering/Resolving]
  - Gait disturbance [Unknown]
  - Abasia [Recovering/Resolving]
  - Headache [Unknown]
  - Parkinson^s disease [Unknown]
  - Speech disorder [Recovering/Resolving]
  - Asthenia [Unknown]
  - Vomiting [Unknown]
  - Influenza like illness [Unknown]
  - Constipation [Unknown]
  - Muscular weakness [Unknown]
  - Tremor [Unknown]
  - Memory impairment [Unknown]
  - Asthenia [Recovering/Resolving]
